FAERS Safety Report 7456350-8 (Version None)
Quarter: 2011Q2

REPORT INFORMATION
  Report Type: 
  Country: None (occurrence: None)
  Receive Date: 20110503
  Receipt Date: 20110419
  Transmission Date: 20111010
  Serious: Yes (Hospitalization, Other)
  Sender: FDA-Public Use
  Company Number: JP-JNJFOC-20101000236

PATIENT
  Sex: Female
  Weight: 63 kg

DRUGS (26)
  1. REMICADE [Suspect]
     Indication: BEHCET'S SYNDROME
     Dosage: TOTAL OF 18 INFUSIONS
     Route: 042
  2. PREDNISONE [Concomitant]
     Indication: PROPHYLAXIS
     Route: 042
  3. TIMOPTOL [Concomitant]
     Indication: GLAUCOMA
  4. COLCHICINE [Concomitant]
     Indication: BEHCET'S SYNDROME
     Route: 048
  5. NEORAL [Concomitant]
     Indication: BEHCET'S SYNDROME
     Route: 048
  6. ZYRTEC [Concomitant]
     Indication: SINUSITIS
     Route: 048
  7. COLCHICINE [Concomitant]
     Route: 048
  8. SELBEX [Concomitant]
     Indication: GASTRITIS
     Route: 048
  9. ETODOLAC [Concomitant]
     Indication: BEHCET'S SYNDROME
     Route: 048
  10. KENALOG [Concomitant]
     Indication: BEHCET'S SYNDROME
  11. NEORAL [Concomitant]
     Route: 048
  12. HYALEIN [Concomitant]
     Indication: KERATITIS
  13. COLCHICINE [Concomitant]
     Route: 048
  14. XALATAN [Concomitant]
     Indication: GLAUCOMA
  15. RIBOFLAVIN TAB [Concomitant]
     Indication: BEHCET'S SYNDROME
     Route: 048
  16. PYDOXAL [Concomitant]
     Indication: BEHCET'S SYNDROME
     Route: 048
  17. METHYCOBAL [Concomitant]
     Indication: KERATITIS
  18. BETAMETHASONE [Concomitant]
     Indication: BEHCET'S SYNDROME
     Dosage: VARIOUS DROPS TO EACH EYE
  19. MYSER [Concomitant]
     Indication: BEHCET'S SYNDROME
  20. RINDERON-VG [Concomitant]
     Indication: BEHCET'S SYNDROME
  21. RIVOTRIL [Concomitant]
     Indication: KERATITIS
  22. HIRUDOID CREAM [Concomitant]
     Indication: BEHCET'S SYNDROME
  23. AZUNOL [Concomitant]
     Indication: BEHCET'S SYNDROME
  24. ATARAX [Concomitant]
     Indication: SINUSITIS
     Route: 048
  25. DEXCHLORPHENIRAMINE MALEATE [Concomitant]
     Indication: PROPHYLAXIS
     Route: 048
  26. DASEN [Concomitant]
     Indication: SINUSITIS
     Route: 048

REACTIONS (5)
  - UPPER RESPIRATORY TRACT INFLAMMATION [None]
  - GASTROENTERITIS [None]
  - INFUSION RELATED REACTION [None]
  - ANGIOPATHY [None]
  - CONVULSION [None]
